FAERS Safety Report 6721025-7 (Version None)
Quarter: 2010Q2

REPORT INFORMATION
  Report Type: 
  Country: None (occurrence: None)
  Receive Date: 20100512
  Receipt Date: 20100503
  Transmission Date: 20101027
  Serious: Yes (Other)
  Sender: FDA-Public Use
  Company Number: US-BAYER-201021455NA

PATIENT
  Age: 19 Year
  Sex: Female

DRUGS (1)
  1. OCELLA [Suspect]
     Indication: DRUG USE FOR UNKNOWN INDICATION
     Route: 065
     Dates: start: 20081027, end: 20091001

REACTIONS (1)
  - GALLBLADDER DISORDER [None]
